FAERS Safety Report 21010427 (Version 1)
Quarter: 2022Q2

REPORT INFORMATION
  Report Type: Spontaneous
  Country: TR (occurrence: TR)
  Receive Date: 20220627
  Receipt Date: 20220627
  Transmission Date: 20220721
  Serious: Yes (Death, Other)
  Sender: FDA-Public Use
  Company Number: TR-PFIZER INC-PV202200004627

PATIENT
  Age: 23 Year
  Sex: Male

DRUGS (4)
  1. VANCOMYCIN [Suspect]
     Active Substance: VANCOMYCIN
     Indication: Septic pulmonary embolism
     Dosage: 2 G, DAILY
  2. CEFTRIAXONE [Suspect]
     Active Substance: CEFTRIAXONE
     Indication: Septic pulmonary embolism
     Dosage: 2 G, DAILY
  3. GENTAMICIN [Suspect]
     Active Substance: GENTAMICIN
     Dosage: 240 MG, DAILY
  4. AMPICILLIN [Suspect]
     Active Substance: AMPICILLIN
     Dosage: 4 G, DAILY

REACTIONS (1)
  - Drug ineffective [Fatal]
